FAERS Safety Report 4413933-7 (Version None)
Quarter: 2004Q3

REPORT INFORMATION
  Report Type: 
  Country: None (occurrence: None)
  Receive Date: 20040803
  Receipt Date: 20040614
  Transmission Date: 20050211
  Serious: Yes (Other)
  Sender: FDA-Public Use
  Company Number: FR-ROCHE-371506

PATIENT
  Age: 78 Year
  Sex: Male

DRUGS (4)
  1. ROCEPHIN [Suspect]
     Indication: SUPERINFECTION
     Route: 030
     Dates: start: 20040630, end: 20040701
  2. DRUG UNKNOWN [Concomitant]
     Dosage: DRUG REPORTED AS ^THERALITHE LP^. 1 DOSE A DAY PER OS
     Route: 048
     Dates: start: 19960615
  3. DRUG UNKNOWN [Concomitant]
     Dosage: DRUG REPORTED AS: MIFLASONE. 2 DOSES A DAY.
     Route: 065
     Dates: start: 20031115
  4. FORADIL [Concomitant]
     Dosage: 2 DOSES A DAY.
     Route: 065
     Dates: start: 20031115

REACTIONS (4)
  - DYSPNOEA [None]
  - ERYTHEMA [None]
  - HYPOTENSION [None]
  - URTICARIA [None]
